FAERS Safety Report 9867011 (Version 1)
Quarter: 2014Q1

REPORT INFORMATION
  Report Type: Spontaneous
  Country: US (occurrence: None)
  Receive Date: 20140131
  Receipt Date: 20140131
  Transmission Date: 20141002
  Serious: Yes (Other)
  Sender: FDA-Public Use
  Company Number: AUR-APL-2014-00648

PATIENT
  Sex: Female

DRUGS (5)
  1. SIMVASTATIN(SIMVASTATIN) [Suspect]
     Indication: BLOOD CHOLESTEROL ABNORMAL
  2. LYRICA (PREGABALIN) [Suspect]
     Indication: FIBROMYALGIA
  3. WELLBUTRIN (BUPROPION HYDROCHLORIDE) [Suspect]
     Indication: PRODUCT USED FOR UNKNOWN INDICATION
  4. OXYCONTIN (OXYCODONE HYDROCHLORIDE) [Suspect]
     Indication: PRODUCT USED FOR UNKNOWN INDICATION
     Dosage: 80MG AND 40MG IN MORNING, 80MG IN NIGHT (3X/DAY),UNKNOWN
     Dates: start: 2011
  5. SOMA (CARISOPRODOL) [Suspect]
     Indication: PRODUCT USED FOR UNKNOWN INDICATION
     Dosage: 80MG AND 40MG IN MORNING, 80MG IN NIGHT (350 MG,A: REQUIRED),UNK

REACTIONS (10)
  - Ill-defined disorder [None]
  - Incoherent [None]
  - Feeling abnormal [None]
  - Feeling abnormal [None]
  - Drug ineffective [None]
  - Abasia [None]
  - Feeling drunk [None]
  - Drug interaction [None]
  - Activities of daily living impaired [None]
  - Somnolence [None]
